FAERS Safety Report 23533015 (Version 1)
Quarter: 2024Q1

REPORT INFORMATION
  Report Type: Spontaneous
  Country: US (occurrence: None)
  Receive Date: 20240216
  Receipt Date: 20240216
  Transmission Date: 20240409
  Serious: Yes (Disabling)
  Sender: FDA-Public Use
  Company Number: None

PATIENT
  Age: 59 Year
  Sex: Male
  Weight: 92.25 kg

DRUGS (1)
  1. ORGOVYX [Suspect]
     Active Substance: RELUGOLIX

REACTIONS (1)
  - Headache [None]

NARRATIVE: CASE EVENT DATE: 20240201
